FAERS Safety Report 24810523 (Version 5)
Quarter: 2025Q3

REPORT INFORMATION
  Report Type: Spontaneous
  Country: IN (occurrence: IN)
  Receive Date: 20250106
  Receipt Date: 20250919
  Transmission Date: 20251021
  Serious: Yes (Other)
  Sender: PFIZER
  Company Number: IN-PFIZER INC-2020279431

PATIENT
  Age: 34 Year
  Sex: Female
  Weight: 61.9 kg

DRUGS (21)
  1. PALBOCICLIB [Suspect]
     Active Substance: PALBOCICLIB
     Indication: Breast cancer metastatic
     Route: 048
     Dates: start: 20190809
  2. PALBOCICLIB [Suspect]
     Active Substance: PALBOCICLIB
     Route: 048
     Dates: start: 20190906
  3. PALBOCICLIB [Suspect]
     Active Substance: PALBOCICLIB
     Route: 048
  4. PALBOCICLIB [Suspect]
     Active Substance: PALBOCICLIB
     Route: 048
  5. LETROZOLE [Concomitant]
     Active Substance: LETROZOLE
     Dosage: 2.5 MG, DAILY
  6. GOSERELIN [Concomitant]
     Active Substance: GOSERELIN
     Dosage: 3.6 MG, MONTHLY
     Route: 058
  7. GOSERELIN [Concomitant]
     Active Substance: GOSERELIN
     Dosage: 10.8 MG, EVERY 3 MONTHS
     Route: 058
  8. CALCIUM CARBONATE\CHOLECALCIFEROL [Concomitant]
     Active Substance: CALCIUM CARBONATE\CHOLECALCIFEROL
     Dosage: 1 DF, DAILY X 1 MONTH (3 MONTHS, AFTER FOOD)
  9. CALCIUM CARBONATE\CHOLECALCIFEROL [Concomitant]
     Active Substance: CALCIUM CARBONATE\CHOLECALCIFEROL
     Dosage: 1 DF, DAILY
  10. CALCIUM CARBONATE\CHOLECALCIFEROL [Concomitant]
     Active Substance: CALCIUM CARBONATE\CHOLECALCIFEROL
     Dosage: UNK, DAILY (1-0-0) X 3 MONTH (AFTER FOOD)
  11. FULVESTRANT [Concomitant]
     Active Substance: FULVESTRANT
     Route: 030
     Dates: start: 20240422
  12. FULVESTRANT [Concomitant]
     Active Substance: FULVESTRANT
     Route: 030
     Dates: start: 20240520
  13. FULVESTRANT [Concomitant]
     Active Substance: FULVESTRANT
     Dosage: 500 MG, MONTHLY (1-0-0, 1 DAY, MONTHLY ONCE)
     Route: 030
  14. FULVESTRANT [Concomitant]
     Active Substance: FULVESTRANT
     Dosage: UNK, MONTHLY
  15. FULVESTRANT [Concomitant]
     Active Substance: FULVESTRANT
     Dosage: 200 MG, MONTHLY (DEEP IM, MONTHLY)
     Route: 030
  16. ZOLEDRONIC ACID [Concomitant]
     Active Substance: ZOLEDRONIC ACID
     Dosage: 4 MG, MONTHLY
     Route: 042
  17. ZOLEDRONIC ACID [Concomitant]
     Active Substance: ZOLEDRONIC ACID
     Dosage: 4 MG, MONTHLY (ONCE)
     Route: 042
  18. BETADINE GARGLES [Concomitant]
     Dosage: UNK, 2X/DAY (1-0-1, 1 MONTHS)
  19. BETADINE GARGLES [Concomitant]
     Dosage: UNK, 2X/DAY (3 MONTHS)
  20. DENOSUMAB [Concomitant]
     Active Substance: DENOSUMAB
     Route: 058
  21. LEVOCETIRIZINE DIHYDROCHLORIDE [Concomitant]
     Active Substance: LEVOCETIRIZINE DIHYDROCHLORIDE
     Dosage: 5 MG, 1X/DAY (5 MG, 0-0-1, 5 DAYS)

REACTIONS (25)
  - Osteonecrosis of jaw [Unknown]
  - Breast cancer metastatic [Unknown]
  - Malignant neoplasm progression [Unknown]
  - Metastases to liver [Unknown]
  - Metastases to bone [Unknown]
  - Cough [Recovered/Resolved]
  - Pain [Recovered/Resolved]
  - Gingival bleeding [Unknown]
  - Dizziness [Unknown]
  - Blood calcium increased [Unknown]
  - Amenorrhoea [Unknown]
  - Arthralgia [Unknown]
  - Headache [Unknown]
  - Dyspepsia [Unknown]
  - Hepatomegaly [Unknown]
  - Hepatic steatosis [Unknown]
  - Haemoglobin decreased [Unknown]
  - Anorectal infection [Unknown]
  - Neutrophil percentage decreased [Unknown]
  - White blood cell count decreased [Unknown]
  - Asthenia [Unknown]
  - Peripheral swelling [Unknown]
  - Lymphoedema [Unknown]
  - Pain in extremity [Unknown]
  - Pyrexia [Unknown]

NARRATIVE: CASE EVENT DATE: 20241001
